FAERS Safety Report 7080755-0 (Version None)
Quarter: 2010Q4

REPORT INFORMATION
  Report Type: 
  Country: None (occurrence: None)
  Receive Date: 20101103
  Receipt Date: 20101020
  Transmission Date: 20110411
  Serious: Yes (Death, Hospitalization, Other)
  Sender: FDA-Public Use
  Company Number: US-ACTELION-A-NJ2010-35830

PATIENT
  Sex: Female

DRUGS (19)
  1. BOSENTAN TABLET 62.5 MG US [Suspect]
     Indication: PULMONARY ARTERIAL HYPERTENSION
     Dosage: 62.5 MG, BID
     Route: 048
     Dates: start: 20100316, end: 20100901
  2. CONTRAST MEDIA [Suspect]
  3. REVATIO [Concomitant]
  4. COUMADIN [Concomitant]
  5. ACETAMINOPHEN [Concomitant]
  6. ALBUMEN [Concomitant]
  7. XANAX [Concomitant]
  8. CORDARONE [Concomitant]
  9. ASPIRIN [Concomitant]
  10. AZTREONAM [Concomitant]
  11. DIGOXIN [Concomitant]
  12. COLACE [Concomitant]
  13. PROCRIT [Concomitant]
  14. HEPARIN [Concomitant]
  15. MULTI-VITAMIN [Concomitant]
  16. ZOFRAN [Concomitant]
  17. PROTONIX [Concomitant]
  18. MORPHINE [Concomitant]
  19. VANCOMYCIN [Concomitant]

REACTIONS (17)
  - ATRIAL FIBRILLATION [None]
  - DIALYSIS [None]
  - DRUG HYPERSENSITIVITY [None]
  - DYSPNOEA [None]
  - EPISTAXIS [None]
  - HAEMOGLOBIN DECREASED [None]
  - HYPERSENSITIVITY [None]
  - HYPOTENSION [None]
  - INTERNATIONAL NORMALISED RATIO INCREASED [None]
  - PULMONARY HYPERTENSION [None]
  - PYREXIA [None]
  - RENAL FAILURE [None]
  - RENAL TUBULAR NECROSIS [None]
  - SWELLING [None]
  - TACHYARRHYTHMIA [None]
  - TRANSFUSION [None]
  - VENTRICULAR EXTRASYSTOLES [None]
